FAERS Safety Report 6393115-2 (Version None)
Quarter: 2009Q4

REPORT INFORMATION
  Report Type: 
  Country: None (occurrence: None)
  Receive Date: 20091008
  Receipt Date: 20070614
  Transmission Date: 20100525
  Serious: Yes (Other)
  Sender: FDA-Public Use
  Company Number: US-ASTRAZENECA-2006UW27793

PATIENT
  Age: 18637 Day
  Sex: Male
  Weight: 56.7 kg

DRUGS (15)
  1. SEROQUEL [Suspect]
     Indication: DEPRESSION
     Dosage: STRENGTH 100MG DOSE 100MG-400MG DAILY
     Route: 048
     Dates: start: 20050829
  2. SEROQUEL [Suspect]
     Indication: SCHIZOPHRENIA
     Dosage: STRENGTH 100MG DOSE 100MG-400MG DAILY
     Route: 048
     Dates: start: 20050829
  3. SEROQUEL [Suspect]
     Dosage: 100 MG TO 200 MG
     Route: 048
     Dates: start: 20051112
  4. SEROQUEL [Suspect]
     Dosage: 100 MG TO 200 MG
     Route: 048
     Dates: start: 20051112
  5. GEODON [Concomitant]
  6. ABILIFY [Concomitant]
     Dosage: 10 MG TO 30 MG
     Dates: start: 20041122, end: 20041202
  7. HALDOL [Concomitant]
     Dates: start: 20041122
  8. PREVACID [Concomitant]
     Dosage: STRENGTH 30MG DOSE 30MG-60MG DAILY
     Route: 048
     Dates: start: 20040826
  9. LISINOPRIL [Concomitant]
     Dates: start: 20040826
  10. ZOLOFT [Concomitant]
     Dosage: STRENGTH 10MG, 50MG, 100MG, 200MG DOSE 10MG-200MG DAILY
     Route: 048
     Dates: start: 20040826
  11. HYDROCHLOROTHIAZIDE [Concomitant]
     Dates: start: 20051123
  12. AVAPRO [Concomitant]
     Dosage: 300MG DAILY
     Route: 048
     Dates: start: 20050829
  13. LOTREL [Concomitant]
     Dosage: 5/10 TWO CAPSULES B.I.D
     Route: 048
     Dates: start: 20050806
  14. QUESTRAN [Concomitant]
     Dosage: FOUR TIMES A DAY
     Route: 048
     Dates: start: 20050806
  15. LEXAPRO [Concomitant]
     Route: 048
     Dates: start: 20050806

REACTIONS (7)
  - BLOOD CHOLESTEROL INCREASED [None]
  - DIABETES MELLITUS [None]
  - DIABETIC KETOACIDOSIS [None]
  - DIABETIC NEPHROPATHY [None]
  - NEUROPATHY PERIPHERAL [None]
  - PANCREATITIS [None]
  - PANCREATITIS ACUTE [None]
